FAERS Safety Report 21921212 (Version 1)
Quarter: 2023Q1

REPORT INFORMATION
  Report Type: Spontaneous
  Country: US (occurrence: US)
  Receive Date: 20230127
  Receipt Date: 20230127
  Transmission Date: 20230417
  Serious: Yes (Other)
  Sender: FDA-Public Use
  Company Number: US-TAKEDA-2023TUS007645

PATIENT
  Sex: Male

DRUGS (5)
  1. VYVANSE [Suspect]
     Active Substance: LISDEXAMFETAMINE DIMESYLATE
     Indication: Attention deficit hyperactivity disorder
     Dosage: UNK
     Route: 065
     Dates: start: 202110, end: 202111
  2. RITALIN [Concomitant]
     Active Substance: METHYLPHENIDATE HYDROCHLORIDE
  3. PROVIGIL [Concomitant]
     Active Substance: MODAFINIL
     Dosage: 400 MILLIGRAM
     Route: 065
  4. TESTOSTERONE [Concomitant]
     Active Substance: TESTOSTERONE
     Indication: Guillain-Barre syndrome
     Dosage: UNK UNK, 1/WEEK
     Route: 065
  5. SUBOXONE [Concomitant]
     Active Substance: BUPRENORPHINE HYDROCHLORIDE\NALOXONE HYDROCHLORIDE

REACTIONS (11)
  - Hallucination [Unknown]
  - COVID-19 [Unknown]
  - Bone density decreased [Unknown]
  - Muscle atrophy [Unknown]
  - Drug ineffective [Unknown]
  - Ulcer [Unknown]
  - Cataract [Unknown]
  - Irritability [Unknown]
  - Insomnia [Unknown]
  - Depression [Unknown]
  - Psychotic disorder [Unknown]
